FAERS Safety Report 6417697-7 (Version None)
Quarter: 2009Q4

REPORT INFORMATION
  Report Type: 
  Country: None (occurrence: None)
  Receive Date: 20091028
  Receipt Date: 20091022
  Transmission Date: 20100525
  Serious: Yes (Other)
  Sender: FDA-Public Use
  Company Number: US-BAYER-200915844BCC

PATIENT
  Age: 72 Year
  Sex: Female
  Weight: 75 kg

DRUGS (4)
  1. ALEVE [Suspect]
     Indication: ARTHRALGIA
     Dosage: DOSE: AT LEAST 4 A DAY
     Route: 048
     Dates: start: 20070101
  2. ACIDOPHILUS [Concomitant]
  3. UNKNOWN CALCIUM PILL [Concomitant]
     Route: 048
  4. UNKNWON SILVER VITAMIN [Concomitant]

REACTIONS (1)
  - CHEST PAIN [None]
